FAERS Safety Report 9324739 (Version 2)
Quarter: 2013Q2

REPORT INFORMATION
  Report Type: Spontaneous
  Country: US (occurrence: US)
  Receive Date: 20130603
  Receipt Date: 20130625
  Transmission Date: 20140414
  Serious: Yes (Hospitalization, Disabling, Other)
  Sender: FDA-Public Use
  Company Number: US-009507513-0612USA00525

PATIENT
  Sex: Female
  Weight: 47.63 kg

DRUGS (6)
  1. FOSAMAX [Suspect]
     Indication: OSTEOPOROSIS
     Dosage: 70 MG, QW
     Route: 048
     Dates: start: 20030407, end: 20061205
  2. FOSAMAX [Suspect]
     Indication: BONE DISORDER
  3. THERAPY UNSPECIFIED [Concomitant]
  4. LIPITOR [Concomitant]
  5. PAXIL [Concomitant]
  6. EVISTA [Concomitant]

REACTIONS (20)
  - Jaw disorder [Not Recovered/Not Resolved]
  - Knee arthroplasty [Unknown]
  - Spinal compression fracture [Unknown]
  - Spinal compression fracture [Unknown]
  - Accelerated hypertension [Unknown]
  - Spinal compression fracture [Unknown]
  - Osteoporosis [Not Recovered/Not Resolved]
  - Spinal decompression [Unknown]
  - Lung neoplasm malignant [Unknown]
  - Osteonecrosis of jaw [Not Recovered/Not Resolved]
  - Gingival swelling [Not Recovered/Not Resolved]
  - Arthropathy [Unknown]
  - Impaired healing [Not Recovered/Not Resolved]
  - Anaemia [Unknown]
  - Arthropathy [Unknown]
  - Hypertension [Not Recovered/Not Resolved]
  - Hyperlipidaemia [Unknown]
  - Hypertension [Unknown]
  - Oropharyngeal pain [Unknown]
  - Lipoma [Unknown]
